FAERS Safety Report 24241041 (Version 1)
Quarter: 2024Q3

REPORT INFORMATION
  Report Type: Spontaneous
  Country: PH (occurrence: PH)
  Receive Date: 20240823
  Receipt Date: 20240823
  Transmission Date: 20241017
  Serious: Yes (Death)
  Sender: MDD OPERATIONS
  Company Number: PH-ZAMBON-202401969COR

PATIENT

DRUGS (1)
  1. SAFINAMIDE [Suspect]
     Active Substance: SAFINAMIDE
     Indication: Parkinson^s disease
     Route: 048

REACTIONS (1)
  - COVID-19 [Fatal]
